FAERS Safety Report 16985809 (Version 1)
Quarter: 2019Q4

REPORT INFORMATION
  Report Type: Spontaneous
  Country: US (occurrence: US)
  Receive Date: 20191101
  Receipt Date: 20191101
  Transmission Date: 20200122
  Serious: No
  Sender: FDA-Public Use
  Company Number: US-FLEXION THERAPEUTICS, INC.-2019FLS000133

PATIENT
  Sex: Female

DRUGS (5)
  1. ZILRETTA [Suspect]
     Active Substance: TRIAMCINOLONE ACETONIDE
     Indication: PRODUCT USED FOR UNKNOWN INDICATION
     Route: 014
     Dates: start: 20190701, end: 20190701
  2. CORTISONE [Concomitant]
     Active Substance: CORTISONE
     Dates: start: 20180503, end: 20180503
  3. CORTISONE [Concomitant]
     Active Substance: CORTISONE
     Indication: PRODUCT USED FOR UNKNOWN INDICATION
     Dates: start: 20161231, end: 20161231
  4. CORTISONE [Concomitant]
     Active Substance: CORTISONE
     Dates: start: 20190221, end: 20190221
  5. CORTISONE [Concomitant]
     Active Substance: CORTISONE
     Dates: start: 20170531, end: 20170531

REACTIONS (3)
  - Pain in extremity [Unknown]
  - Arthralgia [Unknown]
  - Therapeutic response shortened [Recovered/Resolved]

NARRATIVE: CASE EVENT DATE: 201907
